FAERS Safety Report 15052684 (Version 1)
Quarter: 2018Q2

REPORT INFORMATION
  Report Type: Spontaneous
  Country: US (occurrence: US)
  Receive Date: 20180622
  Receipt Date: 20180622
  Transmission Date: 20180711
  Serious: No
  Sender: FDA-Public Use
  Company Number: US-GLAXOSMITHKLINE-US2018110026

PATIENT
  Sex: Female

DRUGS (11)
  1. ESTRADIOL VALERATE. [Concomitant]
     Active Substance: ESTRADIOL VALERATE
  2. SUMATRIPTAN (SUMATRIPTAN SUCCINATE) TABLET [Concomitant]
     Active Substance: SUMATRIPTAN
  3. FINASTERIDE. [Concomitant]
     Active Substance: FINASTERIDE
  4. RISPERDAL [Concomitant]
     Active Substance: RISPERIDONE
  5. PANTOPRAZOLE [Concomitant]
     Active Substance: PANTOPRAZOLE
  6. FLEXERIL TABLET (CYCLOBENZAPRINE) [Concomitant]
  7. ZONISAMIDE. [Concomitant]
     Active Substance: ZONISAMIDE
  8. BENLYSTA [Suspect]
     Active Substance: BELIMUMAB
     Indication: SYSTEMIC LUPUS ERYTHEMATOSUS
     Dosage: 200 MG, WE
     Route: 058
     Dates: start: 201805
  9. PLAQUENIL [Concomitant]
     Active Substance: HYDROXYCHLOROQUINE SULFATE
  10. SUBOXONE [Concomitant]
     Active Substance: BUPRENORPHINE HYDROCHLORIDE\NALOXONE HYDROCHLORIDE
  11. TIROSINT [Concomitant]
     Active Substance: LEVOTHYROXINE SODIUM

REACTIONS (5)
  - Malaise [Recovering/Resolving]
  - Pain in extremity [Recovering/Resolving]
  - Condition aggravated [Unknown]
  - Anxiety [Recovering/Resolving]
  - Rash pruritic [Recovering/Resolving]
